FAERS Safety Report 5612834-6 (Version None)
Quarter: 2008Q1

REPORT INFORMATION
  Report Type: 
  Country: None (occurrence: None)
  Receive Date: 20080128
  Receipt Date: 20070910
  Transmission Date: 20080703
  Serious: Yes (Hospitalization, Other)
  Sender: FDA-Public Use
  Company Number: T08-USA-00206-03

PATIENT

DRUGS (1)
  1. CERVIDIL [Suspect]
     Indication: LABOUR INDUCTION
     Dosage: 10 MG ONCE TRANSPLACENTAL
     Route: 064
     Dates: start: 20061031, end: 20061031

REACTIONS (10)
  - APGAR SCORE LOW [None]
  - BRADYCARDIA FOETAL [None]
  - DRUG EXPOSURE DURING PREGNANCY [None]
  - FOETAL HEART RATE DISORDER [None]
  - FORCEPS DELIVERY [None]
  - HYPOXIA [None]
  - NEONATAL ASPIRATION [None]
  - SEPSIS [None]
  - TACHYPNOEA [None]
  - UMBILICAL CORD AROUND NECK [None]
